FAERS Safety Report 7584935-7 (Version None)
Quarter: 2011Q2

REPORT INFORMATION
  Report Type: 
  Country: None (occurrence: None)
  Receive Date: 20110630
  Receipt Date: 20110621
  Transmission Date: 20111010
  Serious: Yes (Hospitalization, Other)
  Sender: FDA-Public Use
  Company Number: US-ABBOTT-11P-163-0734952-00

PATIENT
  Sex: Female
  Weight: 65.83 kg

DRUGS (14)
  1. DILTIAZEM [Concomitant]
     Indication: HYPERTENSION
  2. AMBIEN [Concomitant]
     Indication: MUSCLE SPASMS
  3. CELEBREX [Concomitant]
     Indication: RHEUMATOID ARTHRITIS
  4. HUMIRA [Suspect]
     Indication: RHEUMATOID ARTHRITIS
     Dates: start: 20060101, end: 20101001
  5. REQUIP [Concomitant]
     Indication: RESTLESS LEGS SYNDROME
  6. PRAVACHOL [Concomitant]
     Indication: CORONARY ARTERY DISEASE
  7. DILTIAZEM [Concomitant]
     Indication: RESTLESS LEGS SYNDROME
  8. KLONOPIN [Concomitant]
     Indication: RESTLESS LEGS SYNDROME
  9. VANCOMYCIN [Suspect]
     Indication: OSTEOMYELITIS
  10. TOPROL-XL [Concomitant]
     Indication: HYPERTENSION
  11. AMLODIPINE [Concomitant]
     Indication: HYPERTENSION
  12. VANCOMYCIN [Suspect]
     Indication: STAPHYLOCOCCAL INFECTION
     Route: 042
     Dates: start: 20101207, end: 20110101
  13. HUMIRA [Suspect]
     Dates: start: 20110301
  14. LASIX [Concomitant]
     Indication: HYPERTENSION

REACTIONS (11)
  - NEUROMA [None]
  - ABASIA [None]
  - IMPAIRED HEALING [None]
  - DRUG HYPERSENSITIVITY [None]
  - BRONCHITIS [None]
  - STAPHYLOCOCCAL INFECTION [None]
  - OSTEOMYELITIS [None]
  - JOINT DESTRUCTION [None]
  - CLOSTRIDIAL INFECTION [None]
  - PAIN [None]
  - DERMATITIS ALLERGIC [None]
